FAERS Safety Report 7235373-8 (Version None)
Quarter: 2011Q1

REPORT INFORMATION
  Report Type: 
  Country: None (occurrence: None)
  Receive Date: 20110120
  Receipt Date: 20110117
  Transmission Date: 20110831
  Serious: Yes (Other)
  Sender: FDA-Public Use
  Company Number: BR-PFIZER INC-2010155870

PATIENT
  Age: 65 Year
  Sex: Female
  Weight: 68 kg

DRUGS (2)
  1. TIMOPTOL [Concomitant]
     Indication: GLAUCOMA
     Dosage: IN THE MORNING
  2. XALATAN [Suspect]
     Indication: GLAUCOMA
     Dosage: 3 UG, 1X/DAY AT NIGHT
     Route: 047
     Dates: start: 20000101

REACTIONS (4)
  - DAYDREAMING [None]
  - INTRAOCULAR PRESSURE INCREASED [None]
  - LABYRINTHITIS [None]
  - BLOOD CHOLESTEROL INCREASED [None]
